FAERS Safety Report 5401384-8 (Version None)
Quarter: 2007Q3

REPORT INFORMATION
  Report Type: 
  Country: None (occurrence: None)
  Receive Date: 20070731
  Receipt Date: 20070727
  Transmission Date: 20080115
  Serious: Yes (Life-Threatening, Hospitalization)
  Sender: FDA-Public Use
  Company Number: D0053793A

PATIENT
  Age: 47 Year
  Sex: Female

DRUGS (5)
  1. AVANDAMET [Suspect]
     Dosage: 1004MG TWICE PER DAY
     Route: 048
     Dates: start: 20040801
  2. DICLOFENAC SODIUM [Concomitant]
     Indication: SPINAL CORD DISORDER
     Route: 048
  3. TEFILIN [Concomitant]
     Route: 048
     Dates: start: 20050501
  4. SIOFOR [Concomitant]
     Route: 048
     Dates: start: 20020101, end: 20040101
  5. TRISTEP [Concomitant]
     Route: 048
     Dates: start: 19990101

REACTIONS (3)
  - ANGINA PECTORIS [None]
  - DYSPNOEA [None]
  - MYOCARDIAL INFARCTION [None]
